FAERS Safety Report 7357113-4 (Version None)
Quarter: 2011Q1

REPORT INFORMATION
  Report Type: 
  Country: None (occurrence: None)
  Receive Date: 20110310
  Receipt Date: 20110310
  Transmission Date: 20110831
  Serious: Yes (Life-Threatening, Hospitalization)
  Sender: FDA-Public Use
  Company Number: None

PATIENT
  Age: 64 Year
  Sex: Male
  Weight: 82.6 kg

DRUGS (4)
  1. SIMVASTATIN [Suspect]
     Indication: HYPERLIPIDAEMIA
     Dosage: 80 MG HS PO
     Route: 048
     Dates: start: 20040601, end: 20100111
  2. SIMVASTATIN [Suspect]
     Indication: CHRONIC LYMPHOCYTIC LEUKAEMIA
     Dosage: 80 MG HS PO
     Route: 048
     Dates: start: 20040601, end: 20100111
  3. SIMVASTATIN [Suspect]
     Indication: HYPERTENSION
     Dosage: 80 MG HS PO
     Route: 048
     Dates: start: 20040601, end: 20100111
  4. GEMFIBROZIL [Suspect]
     Indication: HYPERLIPIDAEMIA
     Dosage: 600 MG BID PO
     Route: 048
     Dates: end: 20100111

REACTIONS (2)
  - RENAL FAILURE ACUTE [None]
  - RHABDOMYOLYSIS [None]
